FAERS Safety Report 6390167-0 (Version None)
Quarter: 2009Q4

REPORT INFORMATION
  Report Type: 
  Country: None (occurrence: None)
  Receive Date: 20091006
  Receipt Date: 20090926
  Transmission Date: 20100525
  Serious: Yes (Death, Congenital Anomaly)
  Sender: FDA-Public Use
  Company Number: IN-ABBOTT-09P-078-0599403-00

PATIENT
  Sex: Male

DRUGS (1)
  1. LEUPROLIDE DEPOT 3.75 MG [Suspect]
     Indication: DRUG EXPOSURE DURING PREGNANCY
     Route: 064

REACTIONS (2)
  - BLADDER DILATATION [None]
  - DRUG EXPOSURE DURING PREGNANCY [None]
